FAERS Safety Report 18554774 (Version 3)
Quarter: 2021Q1

REPORT INFORMATION
  Report Type: Report from Study
  Country: FR (occurrence: FR)
  Receive Date: 20201127
  Receipt Date: 20210301
  Transmission Date: 20210419
  Serious: Yes (Hospitalization)
  Sender: FDA-Public Use
  Company Number: FR-CELGENEUS-FRA-20201105799

PATIENT
  Age: 78 Year
  Sex: Male
  Weight: 63 kg

DRUGS (8)
  1. ALLOPURINOL. [Concomitant]
     Active Substance: ALLOPURINOL
     Indication: GOUT
     Dosage: 100 MG X 1 X 1 DAYS
     Route: 048
  2. LAMALINE [Concomitant]
     Indication: GOUT
     Route: 048
     Dates: end: 202009
  3. TEMESTA [Concomitant]
     Indication: PROPHYLAXIS
     Dosage: 1 MG X 1 X 1 DAYS
     Route: 048
     Dates: start: 202009
  4. ELIQUIS [Concomitant]
     Active Substance: APIXABAN
     Indication: ATRIAL FIBRILLATION
     Dosage: 2.5 MG X 2 X 1 DAYS
     Route: 048
     Dates: start: 20201117
  5. THIAMINE. [Concomitant]
     Active Substance: THIAMINE
     Indication: VITAMIN SUPPLEMENTATION
     Dosage: 250 MG X 1 X 1 MONTHS
     Route: 048
     Dates: start: 20201123
  6. CORDARONE [Concomitant]
     Active Substance: AMIODARONE HYDROCHLORIDE
     Indication: ATRIAL FIBRILLATION
     Dosage: 1 TABLET X 2 X 1 DAYS
     Route: 048
     Dates: start: 20201117
  7. DUPHALAC [Concomitant]
     Active Substance: LACTULOSE
     Indication: CONSTIPATION PROPHYLAXIS
     Dosage: 1 SACHET X 2 X 1 DAYS
     Route: 048
     Dates: start: 20200916
  8. FEDRATINIB [Suspect]
     Active Substance: FEDRATINIB
     Indication: PRIMARY MYELOFIBROSIS
     Dosage: 400 MG X 1 X 1 DAYS
     Route: 048
     Dates: start: 20200907, end: 20200910

REACTIONS (1)
  - Right ventricular failure [Recovered/Resolved]

NARRATIVE: CASE EVENT DATE: 20201117
